FAERS Safety Report 8355479-X (Version None)
Quarter: 2012Q2

REPORT INFORMATION
  Report Type: 
  Country: None (occurrence: None)
  Receive Date: 20120512
  Receipt Date: 20120501
  Transmission Date: 20120825
  Serious: Yes (Other)
  Sender: FDA-Public Use
  Company Number: JP-ELI_LILLY_AND_COMPANY-JP201104002085

PATIENT
  Age: 82 Year
  Sex: Female

DRUGS (4)
  1. FORTEO [Suspect]
     Route: 058
  2. FORTEO [Suspect]
     Dosage: UNK
     Route: 058
     Dates: end: 20110402
  3. DEPAS [Concomitant]
     Indication: SLEEP DISORDER
     Dosage: UNK
     Route: 048
  4. FORTEO [Suspect]
     Dosage: UNK
     Route: 058
     Dates: start: 20110404, end: 20110420

REACTIONS (12)
  - SPINAL PAIN [None]
  - INTENTIONAL DRUG MISUSE [None]
  - ABDOMINAL PAIN LOWER [None]
  - BACK PAIN [None]
  - VULVAL CANCER [None]
  - NAUSEA [None]
  - ASTHENIA [None]
  - PYREXIA [None]
  - CONSTIPATION [None]
  - HEADACHE [None]
  - MUSCULOSKELETAL CHEST PAIN [None]
  - DRUG INEFFECTIVE [None]
